FAERS Safety Report 6383902-9 (Version None)
Quarter: 2009Q4

REPORT INFORMATION
  Report Type: 
  Country: None (occurrence: None)
  Receive Date: 20091001
  Receipt Date: 20090921
  Transmission Date: 20100525
  Serious: Yes (Hospitalization)
  Sender: FDA-Public Use
  Company Number: FR-AVENTIS-200913505FR

PATIENT
  Age: 88 Year
  Sex: Female

DRUGS (10)
  1. LASIX [Suspect]
     Dates: end: 20090701
  2. LASIX [Suspect]
     Route: 048
     Dates: start: 20090701, end: 20090806
  3. GLUCOPHAGE [Suspect]
     Route: 048
     Dates: end: 20090727
  4. CARDENSIEL [Concomitant]
     Indication: HYPERTENSION
     Route: 048
  5. ZANIDIP [Concomitant]
     Indication: HYPERTENSION
     Route: 048
  6. ATARAX [Concomitant]
     Indication: ANXIETY
     Route: 048
  7. DIAMICRON [Concomitant]
     Route: 048
  8. PLAVIX [Concomitant]
     Indication: DRUG USE FOR UNKNOWN INDICATION
     Route: 048
  9. TAREG [Concomitant]
     Indication: HYPERTENSION
     Route: 048
  10. KALEORID [Concomitant]
     Route: 048
     Dates: end: 20090726

REACTIONS (10)
  - ACUTE PULMONARY OEDEMA [None]
  - CARDIAC MURMUR [None]
  - CONFUSIONAL STATE [None]
  - DRUG INTERACTION [None]
  - HYPERKALAEMIA [None]
  - HYPONATRAEMIA [None]
  - LACTIC ACIDOSIS [None]
  - METABOLIC ACIDOSIS [None]
  - RENAL FAILURE ACUTE [None]
  - VOMITING [None]
